FAERS Safety Report 8926020 (Version 2)
Quarter: 2013Q2

REPORT INFORMATION
  Report Type: Spontaneous
  Country: US (occurrence: US)
  Receive Date: 20121126
  Receipt Date: 20130426
  Transmission Date: 20140414
  Serious: No
  Sender: FDA-Public Use
  Company Number: US-009507513-1211USA006686

PATIENT
  Sex: Female

DRUGS (1)
  1. NEXPLANON [Suspect]

REACTIONS (1)
  - Adverse event [Unknown]
